FAERS Safety Report 16764506 (Version 3)
Quarter: 2020Q2

REPORT INFORMATION
  Report Type: Report from Study
  Country: ES (occurrence: ES)
  Receive Date: 20190902
  Receipt Date: 20200420
  Transmission Date: 20200713
  Serious: Yes (Other)
  Sender: FDA-Public Use
  Company Number: ES-ROCHE-2388774

PATIENT
  Age: 66 Year
  Sex: Female
  Weight: 63.3 kg

DRUGS (34)
  1. PERTUZUMAB. [Suspect]
     Active Substance: PERTUZUMAB
     Dosage: 420 MG AS MAINTENANCE DOSE ?FOR 4 CYCLE?DATE OF MOST RECENT DOSE OF PERTUZUMAB (420 MG) PRIOR TO AE
     Route: 042
     Dates: start: 20190702
  2. CIPROFLOXACIN. [Concomitant]
     Active Substance: CIPROFLOXACIN
     Indication: URINARY TRACT INFECTION
     Route: 065
     Dates: start: 20190730, end: 20190802
  3. CIPROFLOXACIN. [Concomitant]
     Active Substance: CIPROFLOXACIN
     Indication: PYREXIA
     Route: 065
     Dates: start: 20190913, end: 20190923
  4. EPLERENONE. [Concomitant]
     Active Substance: EPLERENONE
     Indication: CARDIAC FAILURE
     Route: 065
     Dates: start: 20190920
  5. DEXAMETHASONE. [Concomitant]
     Active Substance: DEXAMETHASONE
     Route: 042
     Dates: start: 20190430, end: 20190723
  6. CEFDITOREN [Concomitant]
     Active Substance: CEFDITOREN
     Indication: GASTROINTESTINAL BACTERIAL INFECTION
     Route: 065
     Dates: start: 20190923, end: 20191005
  7. TRASTUZUMAB. [Suspect]
     Active Substance: TRASTUZUMAB
     Dosage: LOADING DOSE
     Route: 042
     Dates: start: 20190702
  8. TRASTUZUMAB. [Suspect]
     Active Substance: TRASTUZUMAB
     Dosage: 6 MG/KG AS MAINTENANCE DOSE?4 CYCLE?DATE OF MOST RECENT DOSE OF TRASTUZUMAB (396 MG) PRIOR TO AE ONS
     Route: 042
     Dates: start: 20190723
  9. PERTUZUMAB. [Suspect]
     Active Substance: PERTUZUMAB
     Dosage: LOADING DOSE
     Route: 042
     Dates: start: 20190702
  10. METRONIDAZOLE. [Concomitant]
     Active Substance: METRONIDAZOLE
     Indication: GASTRIC INFECTION
     Route: 065
     Dates: start: 20190922, end: 20190925
  11. MOXIFLOXACINO [MOXIFLOXACIN HYDROCHLORIDE] [Concomitant]
     Indication: POST PROCEDURAL INFECTION
     Route: 065
     Dates: start: 20190926, end: 20191009
  12. PLACEBO [Suspect]
     Active Substance: UNSPECIFIED INGREDIENT
     Dosage: FOR 4 CYCLES?DATE OF MOST RECENT DOSE OF PLACEBO PRIOR TO AE ONSET: 23/JUL/2019
     Route: 042
     Dates: start: 20190430
  13. PACLITAXEL. [Suspect]
     Active Substance: PACLITAXEL
     Dosage: FOR 12 CONTINUOUS WEEKS?DATE OF MOST RECENT DOSE OF PACLITAXEL (132 MG) PRIOR TO AE ONSET;23/JUL/201
     Route: 042
     Dates: start: 20190702
  14. CYCLOPHOSPHAMIDE. [Suspect]
     Active Substance: CYCLOPHOSPHAMIDE
     Dosage: DATE OF MOST RECENT DOSE OF CYCLOPHOSPHAMIDE (990 MG) PRIOR TO AE ONSET: 11/JUN/2019.
     Route: 042
     Dates: start: 20190430
  15. ALPRAZOLAM. [Concomitant]
     Active Substance: ALPRAZOLAM
     Indication: DEPRESSION
     Route: 065
     Dates: start: 20190708
  16. CALCIUM ACETATE. [Concomitant]
     Active Substance: CALCIUM ACETATE
     Route: 065
     Dates: start: 20190806
  17. DEXCLORFENIRAMINA [Concomitant]
     Active Substance: DEXCHLORPHENIRAMINE
     Indication: NAUSEA
     Route: 065
     Dates: start: 20190716, end: 20190716
  18. FLUOXETINE [Concomitant]
     Active Substance: FLUOXETINE HYDROCHLORIDE
     Indication: DEPRESSION
     Route: 065
     Dates: start: 20190702
  19. BEMIPARIN SODIUM [Concomitant]
     Active Substance: BEMIPARIN SODIUM
     Indication: POST PROCEDURAL INFECTION
     Route: 065
     Dates: start: 20190926, end: 20191009
  20. PARACETAMOL [Concomitant]
     Active Substance: ACETAMINOPHEN
     Indication: POST PROCEDURAL INFECTION
     Route: 065
     Dates: start: 20190729, end: 20190729
  21. PARACETAMOL [Concomitant]
     Active Substance: ACETAMINOPHEN
     Indication: PYREXIA
  22. CANDESARTAN. [Concomitant]
     Active Substance: CANDESARTAN
     Indication: CARDIAC FAILURE
     Route: 065
     Dates: start: 20190920
  23. IVABRADINA [Concomitant]
     Active Substance: IVABRADINE
     Indication: CARDIAC FAILURE
     Route: 065
     Dates: start: 20190828
  24. METAMIZOLE [Concomitant]
     Active Substance: METAMIZOLE
     Indication: ARTHRALGIA
     Route: 048
     Dates: start: 20190528
  25. VANCOMICINA [VANCOMYCIN] [Concomitant]
     Active Substance: VANCOMYCIN
     Indication: GASTRIC INFECTION
     Route: 065
     Dates: start: 20190926, end: 20191003
  26. AMOXCILLIN [Concomitant]
     Active Substance: AMOXICILLIN
     Indication: PYREXIA
     Route: 065
     Dates: start: 20190915, end: 20190923
  27. RAMIPRIL. [Concomitant]
     Active Substance: RAMIPRIL
     Route: 048
     Dates: start: 20190807
  28. DOXORUBICIN [Suspect]
     Active Substance: DOXORUBICIN
     Dosage: DATE OF MOST RECENT DOSE OF DOXORUBICIN (99 MG) PRIOR TO AE ONSET 11/JUN/2019
     Route: 042
     Dates: start: 20190430
  29. DIAZEPAM. [Concomitant]
     Active Substance: DIAZEPAM
     Indication: INSOMNIA
     Route: 048
     Dates: start: 201904
  30. DEXCLORFENIRAMINA [Concomitant]
     Active Substance: DEXCHLORPHENIRAMINE
     Route: 065
     Dates: start: 20190723, end: 20190723
  31. BISOPROLOL [Concomitant]
     Active Substance: BISOPROLOL
     Indication: CARDIAC FAILURE
     Route: 065
     Dates: start: 20190807
  32. CEFUROXIME. [Concomitant]
     Active Substance: CEFUROXIME
     Indication: POST PROCEDURAL INFECTION
     Route: 065
     Dates: start: 20190829, end: 20190908
  33. OMEPRAZOLE. [Concomitant]
     Active Substance: OMEPRAZOLE
     Indication: PROPHYLAXIS
     Route: 065
     Dates: start: 20190528
  34. FUROSEMIDE. [Concomitant]
     Active Substance: FUROSEMIDE
     Route: 065
     Dates: start: 20190807

REACTIONS (1)
  - Mitral valve incompetence [Not Recovered/Not Resolved]

NARRATIVE: CASE EVENT DATE: 20190807
